FAERS Safety Report 8319066-1 (Version None)
Quarter: 2012Q2

REPORT INFORMATION
  Report Type: 
  Country: None (occurrence: None)
  Receive Date: 20120427
  Receipt Date: 20120426
  Transmission Date: 20120825
  Serious: Yes (Other)
  Sender: FDA-Public Use
  Company Number: US-PFIZER INC-2012104056

PATIENT
  Sex: Female
  Weight: 49.433 kg

DRUGS (3)
  1. DIMETAPP [Suspect]
     Indication: RHINORRHOEA
  2. PANTOPRAZOLE [Concomitant]
     Indication: PROPHYLAXIS
     Dosage: 40 MG, DAILY
  3. DIMETAPP [Suspect]
     Indication: COUGH
     Dosage: 4 TEASPOONS, ONCE
     Dates: start: 20120424, end: 20120424

REACTIONS (7)
  - OROPHARYNGEAL PAIN [None]
  - APHAGIA [None]
  - ASTHENIA [None]
  - FLATULENCE [None]
  - PHARYNGEAL OEDEMA [None]
  - ABDOMINAL PAIN UPPER [None]
  - DYSGEUSIA [None]
